FAERS Safety Report 5721887-6 (Version None)
Quarter: 2008Q2

REPORT INFORMATION
  Report Type: 
  Country: None (occurrence: None)
  Receive Date: 20080429
  Receipt Date: 20080417
  Transmission Date: 20081010
  Serious: Yes (Other)
  Sender: FDA-Public Use
  Company Number: GB-PFIZER INC-2008035260

PATIENT
  Age: 27 Year
  Sex: Female
  Weight: 52.4 kg

DRUGS (1)
  1. CHAMPIX [Suspect]

REACTIONS (2)
  - DEPRESSION [None]
  - OBSESSIVE-COMPULSIVE DISORDER [None]
